FAERS Safety Report 7356640-3 (Version None)
Quarter: 2011Q1

REPORT INFORMATION
  Report Type: 
  Country: None (occurrence: None)
  Receive Date: 20110316
  Receipt Date: 20110304
  Transmission Date: 20110831
  Serious: Yes (Hospitalization)
  Sender: FDA-Public Use
  Company Number: PHHY2011GB18482

PATIENT
  Age: 83 Year
  Sex: Female

DRUGS (3)
  1. AMPICILLIN SODIUM/SULBACTAM SODIUM [Suspect]
     Indication: PNEUMONIA
  2. CLARITHROMYCIN [Interacting]
     Indication: PNEUMONIA
  3. SIMVASTATIN [Interacting]
     Indication: HYPERLIPIDAEMIA

REACTIONS (7)
  - MUSCULAR WEAKNESS [None]
  - DEHYDRATION [None]
  - MYOPATHY [None]
  - RHABDOMYOLYSIS [None]
  - MYALGIA [None]
  - DRUG INTERACTION [None]
  - HYPERCALCAEMIA [None]
